FAERS Safety Report 4434831-9 (Version None)
Quarter: 2004Q3

REPORT INFORMATION
  Report Type: 
  Country: None (occurrence: None)
  Receive Date: 20040827
  Receipt Date: 20040624
  Transmission Date: 20050211
  Serious: Yes (Life-Threatening, Hospitalization)
  Sender: FDA-Public Use
  Company Number: US-BRISTOL-MYERS SQUIBB COMPANY-12624755

PATIENT
  Age: 74 Year
  Sex: Male
  Weight: 73 kg

DRUGS (4)
  1. ERBITUX [Suspect]
     Indication: COLON CANCER METASTATIC
     Dosage: 1ST DOSE, 400 MG/M2, REC'D APPROX. 20 ML
     Route: 042
     Dates: start: 20040623, end: 20040623
  2. BENADRYL [Concomitant]
     Indication: PREMEDICATION
     Route: 042
     Dates: start: 20040623, end: 20040623
  3. DECADRON [Concomitant]
     Indication: PREMEDICATION
     Route: 042
     Dates: start: 20040623, end: 20040623
  4. ZOFRAN [Concomitant]
     Indication: PREMEDICATION
     Route: 042
     Dates: start: 20040623, end: 20040623

REACTIONS (3)
  - HEART RATE DECREASED [None]
  - LOSS OF CONSCIOUSNESS [None]
  - PALLOR [None]
